FAERS Safety Report 10528790 (Version 1)
Quarter: 2014Q4

REPORT INFORMATION
  Report Type: Spontaneous
  Country: AR (occurrence: AR)
  Receive Date: 20141020
  Receipt Date: 20141020
  Transmission Date: 20150528
  Serious: Yes (Hospitalization)
  Sender: FDA-Public Use
  Company Number: AR-BRISTOL-MYERS SQUIBB COMPANY-21480470

PATIENT
  Sex: Female
  Weight: 60 kg

DRUGS (10)
  1. ORENCIA [Suspect]
     Active Substance: ABATACEPT
     Route: 058
     Dates: start: 20140710
  2. OMEPRAZOL [Concomitant]
     Active Substance: OMEPRAZOLE
  3. DENOSUMAB [Concomitant]
     Active Substance: DENOSUMAB
  4. MEPREDNISONE [Concomitant]
     Active Substance: MEPREDNISONE
  5. PREGABALIN. [Concomitant]
     Active Substance: PREGABALIN
  6. TRAMADOL [Concomitant]
     Active Substance: TRAMADOL
     Indication: PAIN
  7. CALCIUM [Concomitant]
     Active Substance: CALCIUM
  8. VITAMIN B6 [Concomitant]
     Active Substance: PYRIDOXINE HYDROCHLORIDE
  9. FOLIC ACID. [Concomitant]
     Active Substance: FOLIC ACID
  10. METHOTREXATE [Concomitant]
     Active Substance: METHOTREXATE

REACTIONS (2)
  - Wrist fracture [Unknown]
  - Fall [Unknown]
